FAERS Safety Report 5576323-X (Version None)
Quarter: 2007Q4

REPORT INFORMATION
  Report Type: 
  Country: None (occurrence: None)
  Receive Date: 20071228
  Receipt Date: 20071219
  Transmission Date: 20080405
  Serious: Yes (Other)
  Sender: FDA-Public Use
  Company Number: FR-ROCHE-532270

PATIENT
  Age: 24 Year
  Sex: Female

DRUGS (2)
  1. CELLCEPT [Suspect]
     Indication: LUNG TRANSPLANT
     Route: 065
  2. VITAMIN A [Concomitant]

REACTIONS (1)
  - ABORTION SPONTANEOUS [None]
